FAERS Safety Report 6367430-2 (Version None)
Quarter: 2009Q3

REPORT INFORMATION
  Report Type: 
  Country: None (occurrence: None)
  Receive Date: 20090921
  Receipt Date: 20090915
  Transmission Date: 20100115
  Serious: Yes (Hospitalization)
  Sender: FDA-Public Use
  Company Number: A0808109A

PATIENT
  Sex: Male
  Weight: 11 kg

DRUGS (1)
  1. SERETIDE [Suspect]
     Dosage: 2PUFF PER DAY
     Route: 065
     Dates: start: 20090701

REACTIONS (2)
  - ASTHMATIC CRISIS [None]
  - OVERDOSE [None]
